FAERS Safety Report 16269310 (Version 1)
Quarter: 2019Q2

REPORT INFORMATION
  Report Type: Spontaneous
  Country: NL (occurrence: DE)
  Receive Date: 20190503
  Receipt Date: 20190503
  Transmission Date: 20190711
  Serious: Yes (Hospitalization)
  Sender: FDA-Public Use
  Company Number: DE-FRESENIUS KABI-FK201903697

PATIENT
  Age: 64 Year
  Sex: Male
  Weight: 80 kg

DRUGS (8)
  1. OXALIPLATIN (MANUFACTURER UNKNOWN) [Suspect]
     Active Substance: OXALIPLATIN
     Indication: RECTAL CANCER
     Route: 042
     Dates: start: 20190318, end: 20190318
  2. OXALIPLATIN (MANUFACTURER UNKNOWN) [Suspect]
     Active Substance: OXALIPLATIN
     Route: 042
     Dates: start: 20190215, end: 20190215
  3. FLUOROURACIL. [Suspect]
     Active Substance: FLUOROURACIL
     Indication: RECTAL CANCER
     Route: 042
     Dates: start: 20190215, end: 20190215
  4. FOLINIC ACID [Suspect]
     Active Substance: LEUCOVORIN
     Route: 042
     Dates: start: 20190215, end: 20190215
  5. AFLIBERCEPT [Suspect]
     Active Substance: AFLIBERCEPT
     Indication: RECTAL CANCER
     Route: 042
     Dates: start: 20190215, end: 20190215
  6. FOLINIC ACID [Suspect]
     Active Substance: LEUCOVORIN
     Indication: RECTAL CANCER
     Route: 042
     Dates: start: 20190304, end: 20190304
  7. FLUOROURACIL. [Suspect]
     Active Substance: FLUOROURACIL
     Route: 042
     Dates: start: 20190305, end: 20190305
  8. AFLIBERCEPT [Suspect]
     Active Substance: AFLIBERCEPT
     Route: 042
     Dates: start: 20190318, end: 20190318

REACTIONS (3)
  - Hypertension [Recovered/Resolved]
  - Nephrotic syndrome [Not Recovered/Not Resolved]
  - Proteinuria [Recovered/Resolved]

NARRATIVE: CASE EVENT DATE: 20190318
